FAERS Safety Report 10248038 (Version 1)
Quarter: 2014Q2

REPORT INFORMATION
  Report Type: Spontaneous
  Country: US (occurrence: US)
  Receive Date: 20140619
  Receipt Date: 20140619
  Transmission Date: 20141212
  Serious: No
  Sender: FDA-Public Use
  Company Number: US-009507513-1406USA009482

PATIENT
  Age: 15 Year
  Sex: Female
  Weight: 73 kg

DRUGS (3)
  1. NUVARING [Suspect]
     Indication: CONTRACEPTION
     Dosage: 3 WEEKS IN 1 WEEK OUT
     Route: 067
     Dates: start: 20140616, end: 20140617
  2. ENBREL [Concomitant]
  3. METHOTREXATE [Concomitant]

REACTIONS (1)
  - Epistaxis [Not Recovered/Not Resolved]
